FAERS Safety Report 4467365-6 (Version None)
Quarter: 2004Q4

REPORT INFORMATION
  Report Type: 
  Country: None (occurrence: None)
  Receive Date: 20041004
  Receipt Date: 20040916
  Transmission Date: 20050328
  Serious: Yes (Hospitalization)
  Sender: FDA-Public Use
  Company Number: 176345

PATIENT
  Age: 56 Year
  Sex: Female
  Weight: 76.2043 kg

DRUGS (8)
  1. AVONEX [Suspect]
     Indication: MULTIPLE SCLEROSIS
     Dosage: 30 MCG QW IM
     Route: 030
     Dates: start: 20030501
  2. PREDNISONE [Concomitant]
  3. NORVASC [Concomitant]
  4. COUMADIN [Concomitant]
  5. XANAX [Concomitant]
  6. COMPAZINE [Concomitant]
  7. FENTANYL [Concomitant]
  8. LORTAB [Concomitant]

REACTIONS (12)
  - ABSCESS [None]
  - CENTRAL LINE INFECTION [None]
  - DRUG INEFFECTIVE [None]
  - FUNGUS URINE TEST POSITIVE [None]
  - HAEMOGLOBIN DECREASED [None]
  - MULTIPLE SCLEROSIS RELAPSE [None]
  - OSTEOMYELITIS [None]
  - RED BLOOD CELL SEDIMENTATION RATE INCREASED [None]
  - REFUSAL OF TREATMENT BY PATIENT [None]
  - TREATMENT NONCOMPLIANCE [None]
  - WHITE BLOOD CELL COUNT DECREASED [None]
  - WHITE BLOOD CELL SCAN [None]
